FAERS Safety Report 13738529 (Version 1)
Quarter: 2017Q3

REPORT INFORMATION
  Report Type: Spontaneous
  Country: US (occurrence: US)
  Receive Date: 20170710
  Receipt Date: 20170710
  Transmission Date: 20171127
  Serious: No
  Sender: FDA-Public Use
  Company Number: US-SAOL THERAPEUTICS-2017SAO00139

PATIENT
  Sex: Male

DRUGS (3)
  1. LIORESAL [Suspect]
     Active Substance: BACLOFEN
     Indication: MUSCLE SPASTICITY
     Dosage: 250 ?G, \DAY
     Route: 037
     Dates: start: 20160310, end: 20160325
  2. LIORESAL [Suspect]
     Active Substance: BACLOFEN
     Dosage: 275 ?G, \DAY
     Route: 037
     Dates: start: 20160325
  3. LIORESAL [Suspect]
     Active Substance: BACLOFEN
     Indication: CEREBRAL PALSY
     Dosage: 300.1 ?G, \DAY
     Route: 037
     Dates: start: 20160309, end: 20160310

REACTIONS (2)
  - Implant site extravasation [Unknown]
  - Muscular weakness [Unknown]

NARRATIVE: CASE EVENT DATE: 2016
